FAERS Safety Report 8893981 (Version 1)
Quarter: 2012Q4

REPORT INFORMATION
  Report Type: 
  Country: US (occurrence: US)
  Receive Date: 20121107
  Receipt Date: 20121107
  Transmission Date: 20130627
  Serious: No
  Sender: FDA-Public Use
  Company Number: US-AMGEN-USASP2011060143

PATIENT
  Age: 64 Year
  Sex: Female

DRUGS (11)
  1. ENBREL [Suspect]
     Indication: PRODUCT USED FOR UNKNOWN INDICATION
     Dosage: 25 mg, 2 times/wk
     Route: 058
  2. ACIDOPHILUS [Concomitant]
  3. MELOXICAM [Concomitant]
     Dosage: 7.5 mg, UNK
  4. EFFEXOR XR [Concomitant]
     Dosage: 150 mg, UNK
  5. TRAZODONE [Concomitant]
     Dosage: 50 mg, UNK
  6. LAMICTAL [Concomitant]
     Dosage: 150 mg, UNK
  7. FISH OIL [Concomitant]
  8. MULTIVITAMIN                       /00097801/ [Concomitant]
  9. CALCIUM + VITAMIN D                /01483701/ [Concomitant]
  10. VITAMIN D /00107901/ [Concomitant]
     Dosage: UNK unit, UNK
  11. DILTIAZEM [Concomitant]
     Dosage: 60 mg, UNK

REACTIONS (2)
  - Arthropathy [Unknown]
  - Onychomadesis [Unknown]
